FAERS Safety Report 5334630-X (Version None)
Quarter: 2007Q2

REPORT INFORMATION
  Report Type: 
  Country: None (occurrence: None)
  Receive Date: 20070525
  Receipt Date: 20070523
  Transmission Date: 20071010
  Serious: Yes (Hospitalization)
  Sender: FDA-Public Use
  Company Number: A0652620A

PATIENT
  Sex: Female

DRUGS (2)
  1. TYKERB [Suspect]
     Indication: BREAST CANCER
     Dosage: 5TAB PER DAY
     Route: 048
     Dates: start: 20070509
  2. XELODA [Concomitant]

REACTIONS (4)
  - ANOREXIA [None]
  - DEHYDRATION [None]
  - DIARRHOEA [None]
  - VOMITING [None]
